FAERS Safety Report 7820933-3 (Version None)
Quarter: 2011Q4

REPORT INFORMATION
  Report Type: 
  Country: None (occurrence: None)
  Receive Date: 20111018
  Receipt Date: 20111004
  Transmission Date: 20120403
  Serious: Yes (Other)
  Sender: FDA-Public Use
  Company Number: FR-VIIV HEALTHCARE LIMITED-B0755072A

PATIENT
  Age: 41 Year
  Sex: Male

DRUGS (5)
  1. DARUNAVIR ETHANOLATE [Suspect]
     Indication: HIV INFECTION
     Route: 065
  2. RITONAVIR [Suspect]
     Indication: HIV INFECTION
     Route: 065
  3. ABACAVIR [Suspect]
     Indication: HIV INFECTION
     Route: 065
  4. LAMIVUDINE [Suspect]
     Indication: HIV INFECTION
  5. ENFUVIRTIDE [Suspect]
     Indication: HIV INFECTION
     Route: 065

REACTIONS (2)
  - IMMUNE RECONSTITUTION SYNDROME [None]
  - TUBERCULOSIS [None]
